FAERS Safety Report 5501904-9 (Version None)
Quarter: 2007Q4

REPORT INFORMATION
  Report Type: 
  Country: None (occurrence: None)
  Receive Date: 20071030
  Receipt Date: 20071019
  Transmission Date: 20080405
  Serious: Yes (Hospitalization)
  Sender: FDA-Public Use
  Company Number: GB-ROCHE-526767

PATIENT
  Age: 71 Year
  Sex: Male
  Weight: 104 kg

DRUGS (7)
  1. ORLISTAT [Suspect]
     Indication: OBESITY
     Route: 048
     Dates: start: 20070713
  2. 1 CONCOMITANT DRUG [Concomitant]
     Indication: HYPERTENSION
     Route: 048
     Dates: start: 19970101, end: 20071001
  3. 1 CONCOMITANT DRUG [Concomitant]
     Route: 048
  4. FUROSEMIDE [Concomitant]
     Indication: HYPERTENSION
     Dosage: DRUG NAME REPORTEED: FURASEMIDE
     Route: 048
  5. SPIROLACTONE [Concomitant]
     Indication: HYPERTENSION
     Dosage: REPORTED AS: 12.5 MG (1/2 25 MG)
     Route: 048
  6. ASPIRIN [Concomitant]
     Indication: HYPERTENSION
     Route: 048
  7. ATORVASTATIN CALCIUM [Concomitant]
     Indication: HYPERTENSION
     Dosage: DRUG NAME: ATORSTATIN
     Route: 048

REACTIONS (2)
  - BLOOD PRESSURE DECREASED [None]
  - ILL-DEFINED DISORDER [None]
